FAERS Safety Report 11694447 (Version 7)
Quarter: 2016Q2

REPORT INFORMATION
  Report Type: Report from Study
  Country: DE (occurrence: DE)
  Receive Date: 20151103
  Receipt Date: 20160621
  Transmission Date: 20160815
  Serious: Yes (Hospitalization, Other)
  Sender: FDA-Public Use
  Company Number: DE-JNJFOC-20150710207

PATIENT
  Age: 21 Year
  Sex: Female

DRUGS (6)
  1. AMOXICLAV [Concomitant]
     Active Substance: AMOXICILLIN\CLAVULANIC ACID
     Route: 065
     Dates: start: 20150616, end: 20150701
  2. METRONIDAZOL [Concomitant]
     Active Substance: METRONIDAZOLE
     Route: 065
     Dates: start: 20150603, end: 20150701
  3. FERINJECT [Concomitant]
     Active Substance: FERRIC CARBOXYMALTOSE
     Route: 065
     Dates: start: 20140708
  4. CIPROFLOXACIN. [Concomitant]
     Active Substance: CIPROFLOXACIN
     Route: 065
     Dates: start: 20150603, end: 20150701
  5. SIMPONI [Suspect]
     Active Substance: GOLIMUMAB
     Indication: COLITIS ULCERATIVE
     Route: 058
     Dates: start: 20150123, end: 20150713
  6. VANCOMYCIN [Concomitant]
     Active Substance: VANCOMYCIN
     Indication: VASCULITIS
     Route: 065
     Dates: start: 20150619, end: 20150701

REACTIONS (8)
  - Colectomy [Recovered/Resolved]
  - Postoperative wound infection [Recovered/Resolved]
  - Drug ineffective [Unknown]
  - Ileostomy closure [Recovered/Resolved]
  - Procedural pain [Unknown]
  - Colitis ulcerative [Not Recovered/Not Resolved]
  - Vasculitis [Not Recovered/Not Resolved]
  - Injection site infection [Recovered/Resolved]

NARRATIVE: CASE EVENT DATE: 2015
